FAERS Safety Report 17765558 (Version 1)
Quarter: 2020Q2

REPORT INFORMATION
  Report Type: Spontaneous
  Country: TW (occurrence: TW)
  Receive Date: 20200511
  Receipt Date: 20200511
  Transmission Date: 20200714
  Serious: Yes (Other)
  Sender: FDA-Public Use
  Company Number: TW-MACLEODS PHARMACEUTICALS US LTD-MAC2020026419

PATIENT

DRUGS (13)
  1. FENTANYL. [Interacting]
     Active Substance: FENTANYL
     Dosage: 100 MICROGRAM
     Route: 065
  2. ATENOLOL. [Concomitant]
     Active Substance: ATENOLOL
     Indication: PRODUCT USED FOR UNKNOWN INDICATION
     Dosage: 5 MILLIGRAM, DURING 4 HR OF OPERATION
     Route: 065
  3. PROPOFOL. [Concomitant]
     Active Substance: PROPOFOL
     Dosage: 50 MILLIGRAM, DURING 4 HR OF OPERATION
     Route: 065
  4. TENOXICAM [Concomitant]
     Active Substance: TENOXICAM
     Indication: POSTOPERATIVE ANALGESIA
     Dosage: 20 MILLIGRAM
     Route: 065
  5. PROPOFOL. [Concomitant]
     Active Substance: PROPOFOL
     Indication: INDUCTION OF ANAESTHESIA
     Dosage: 150 MILLIGRAM
     Route: 065
  6. DESFLURANE. [Concomitant]
     Active Substance: DESFLURANE
     Dosage: UNK
     Route: 065
  7. FENTANYL. [Interacting]
     Active Substance: FENTANYL
     Indication: POSTOPERATIVE ANALGESIA
     Dosage: 200 MICROGRAM, DURING 4 HR OF OPERATION
     Route: 065
  8. NALDEBAIN [Interacting]
     Active Substance: DINALBUPHINE SEBACATE
     Indication: PRODUCT USED FOR UNKNOWN INDICATION
     Dosage: 150 MILLIGRAM
     Route: 030
  9. DESFLURANE. [Concomitant]
     Active Substance: DESFLURANE
     Indication: MAINTENANCE OF ANAESTHESIA
     Dosage: 10 PERCENT, DURING 4 HR OF OPERATION
     Route: 065
  10. CISATRACURIUM. [Concomitant]
     Active Substance: CISATRACURIUM
     Indication: INDUCTION OF ANAESTHESIA
     Dosage: 8 MILLIGRAM
     Route: 065
  11. TRAMADOL. [Suspect]
     Active Substance: TRAMADOL
     Indication: POSTOPERATIVE ANALGESIA
     Dosage: 100 MILLIGRAM
     Route: 065
  12. FENTANYL. [Interacting]
     Active Substance: FENTANYL
     Indication: INDUCTION OF ANAESTHESIA
     Dosage: 100 MICROGRAM, RESCUE FENTANYL 100 ?G, IN THE POST-ANESTHETIC CARE UNIT
     Route: 065
  13. NICARDIPINE [Concomitant]
     Active Substance: NICARDIPINE
     Indication: PRODUCT USED FOR UNKNOWN INDICATION
     Dosage: 4 MILLIGRAM, DURING 4 HR OF OPERATION
     Route: 065

REACTIONS (3)
  - Procedural pain [Recovering/Resolving]
  - Drug interaction [Recovering/Resolving]
  - Drug ineffective [Recovering/Resolving]
